FAERS Safety Report 23848716 (Version 4)
Quarter: 2024Q2

REPORT INFORMATION
  Report Type: Spontaneous
  Country: GB (occurrence: GB)
  Receive Date: 20240513
  Receipt Date: 20240529
  Transmission Date: 20240716
  Serious: Yes (Other)
  Sender: FDA-Public Use
  Company Number: GB-ROCHE-2729221

PATIENT
  Age: 72 Year
  Sex: Female
  Weight: 62 kg

DRUGS (89)
  1. VINCRISTINE [Suspect]
     Active Substance: VINCRISTINE
     Indication: Diffuse large B-cell lymphoma
     Dosage: UNK
     Route: 065
  2. VINCRISTINE [Suspect]
     Active Substance: VINCRISTINE
     Indication: Diffuse large B-cell lymphoma
     Dosage: 9 MG/M2, THREE TIMES IN WEEK, TOTAL VOLUME: 50 ML DATE OF MOST RECENT DOSE PRIOR TO FIRST EPISODE OF
     Route: 042
     Dates: start: 20201124
  3. VINCRISTINE [Suspect]
     Active Substance: VINCRISTINE
     Indication: Diffuse large B-cell lymphoma
     Dosage: 9 MG/M2, THREE TIMES IN WEEK, TOTAL VOLUME: 50 ML DATE OF MOST RECENT DOSE PRIOR TO FIRST EPISODE OF
     Route: 042
     Dates: start: 20201124
  4. VINCRISTINE [Suspect]
     Active Substance: VINCRISTINE
     Indication: Diffuse large B-cell lymphoma
     Route: 065
  5. VINCRISTINE [Suspect]
     Active Substance: VINCRISTINE
     Indication: Diffuse large B-cell lymphoma
     Dosage: UNK
     Route: 065
  6. VINCRISTINE [Suspect]
     Active Substance: VINCRISTINE
     Indication: Diffuse large B-cell lymphoma
     Dosage: 9 MG/M2, THREE TIMES IN WEEK, TOTAL VOLUME: 50 ML DATE OF MOST RECENT DOSE PRIOR TO FIRST EPISODE OF
     Route: 042
     Dates: start: 20201124
  7. VINCRISTINE [Suspect]
     Active Substance: VINCRISTINE
     Indication: Diffuse large B-cell lymphoma
     Dosage: UNK
     Route: 065
  8. SENNA [Concomitant]
     Active Substance: SENNA LEAF\SENNOSIDES\SENNOSIDES A AND B
     Indication: Constipation
     Dosage: UNK
     Dates: start: 20201124
  9. RITUXIMAB [Suspect]
     Active Substance: RITUXIMAB
     Indication: Diffuse large B-cell lymphoma
     Dosage: 600 MG, TIW
     Route: 065
     Dates: start: 20210105, end: 20210216
  10. RITUXIMAB [Suspect]
     Active Substance: RITUXIMAB
     Indication: Diffuse large B-cell lymphoma
     Dosage: 3 ML, TIW, TIME INTERVAL: 0.33 WK
     Route: 065
     Dates: start: 20201221, end: 20201221
  11. RITUXIMAB [Suspect]
     Active Substance: RITUXIMAB
     Indication: Diffuse large B-cell lymphoma
     Dosage: 3 ML, TIW
     Route: 065
     Dates: start: 20210216, end: 20210216
  12. RITUXIMAB [Suspect]
     Active Substance: RITUXIMAB
     Indication: Diffuse large B-cell lymphoma
     Dosage: 3 ML, TIW
     Route: 065
     Dates: start: 20210216, end: 20210216
  13. RITUXIMAB [Suspect]
     Active Substance: RITUXIMAB
     Indication: Diffuse large B-cell lymphoma
     Dosage: UNK
     Route: 065
  14. RITUXIMAB [Suspect]
     Active Substance: RITUXIMAB
     Indication: Diffuse large B-cell lymphoma
     Dosage: 9 MG/M2, TOTAL VOLUME PRIOR AE 560 MLDATE OF MOST RECENT DOSE PRIOR TO FIRST EPISODE OF NEUTROPENIA
     Route: 065
     Dates: start: 20201124
  15. RITUXIMAB [Suspect]
     Active Substance: RITUXIMAB
     Indication: Diffuse large B-cell lymphoma
     Dosage: UNK
     Route: 065
  16. RITUXIMAB [Suspect]
     Active Substance: RITUXIMAB
     Indication: Diffuse large B-cell lymphoma
     Dosage: 600 MG, TIW, DURATION: 43 DAYS
     Route: 042
     Dates: end: 20210216
  17. RITUXIMAB [Suspect]
     Active Substance: RITUXIMAB
     Indication: Diffuse large B-cell lymphoma
     Dosage: UNK
     Route: 065
  18. RITUXIMAB [Suspect]
     Active Substance: RITUXIMAB
     Indication: Diffuse large B-cell lymphoma
     Dosage: UNK
     Route: 065
  19. RITUXIMAB [Suspect]
     Active Substance: RITUXIMAB
     Indication: Diffuse large B-cell lymphoma
     Dosage: 3 ML, TIW
     Route: 065
     Dates: end: 20201221
  20. RITUXIMAB [Suspect]
     Active Substance: RITUXIMAB
     Indication: Diffuse large B-cell lymphoma
     Dosage: 9 MG/M2, TOTAL VOLUME PRIOR AE 560 MLDATE OF MOST RECENT DOSE PRIOR TO FIRST EPISODE OF NEUTROPENIA
     Route: 065
     Dates: start: 20201124
  21. RITUXIMAB [Suspect]
     Active Substance: RITUXIMAB
     Indication: Diffuse large B-cell lymphoma
     Dosage: 3 ML, TIW
     Route: 065
     Dates: start: 20210216, end: 20210216
  22. RITUXIMAB [Suspect]
     Active Substance: RITUXIMAB
     Indication: Diffuse large B-cell lymphoma
     Dosage: 9 MG/M2, TOTAL VOLUME PRIOR AE 560 MLDATE OF MOST RECENT DOSE PRIOR TO FIRST EPISODE OF NEUTROPENIA
     Route: 065
     Dates: start: 20201124
  23. RITUXIMAB [Suspect]
     Active Substance: RITUXIMAB
     Indication: Diffuse large B-cell lymphoma
     Dosage: 600 MG, TIW, DURATION: 43 DAYS
     Route: 042
     Dates: start: 20210105, end: 20210216
  24. RITUXIMAB [Suspect]
     Active Substance: RITUXIMAB
     Indication: Diffuse large B-cell lymphoma
     Dosage: 9 MG/M2, TOTAL VOLUME PRIOR AE 560 MLDATE OF MOST RECENT DOSE PRIOR TO FIRST EPISODE OF NEUTROPENIA
     Route: 065
     Dates: start: 20201124
  25. RITUXIMAB [Suspect]
     Active Substance: RITUXIMAB
     Indication: Diffuse large B-cell lymphoma
     Dosage: 600 MG, TIW, DURATION: 43 DAYS
     Route: 042
     Dates: start: 20210105, end: 20210216
  26. RITUXIMAB [Suspect]
     Active Substance: RITUXIMAB
     Indication: Diffuse large B-cell lymphoma
     Dosage: 3 ML, TIW, TIME INTERVAL: 0.33 WK
     Route: 065
     Dates: start: 20201221, end: 20201221
  27. RITUXIMAB [Suspect]
     Active Substance: RITUXIMAB
     Indication: Diffuse large B-cell lymphoma
     Dosage: 3 ML, TIW
     Route: 065
     Dates: start: 20210216, end: 20210216
  28. RITUXIMAB [Suspect]
     Active Substance: RITUXIMAB
     Indication: Diffuse large B-cell lymphoma
     Dosage: 3 ML, TIW
     Route: 065
     Dates: start: 20210216, end: 20210216
  29. RITUXIMAB [Suspect]
     Active Substance: RITUXIMAB
     Indication: Diffuse large B-cell lymphoma
     Dosage: 600 MG, TIW, DURATION: 43 DAYS
     Route: 042
     Dates: start: 20210105, end: 20210216
  30. RITUXIMAB [Suspect]
     Active Substance: RITUXIMAB
     Indication: Diffuse large B-cell lymphoma
     Dosage: UNK
     Route: 065
  31. RITUXIMAB [Suspect]
     Active Substance: RITUXIMAB
     Indication: Diffuse large B-cell lymphoma
     Dosage: 9 MG/M2, TOTAL VOLUME PRIOR AE 560 MLDATE OF MOST RECENT DOSE PRIOR TO FIRST EPISODE OF NEUTROPENIA
     Route: 065
     Dates: start: 20201124
  32. RITUXIMAB [Suspect]
     Active Substance: RITUXIMAB
     Indication: Diffuse large B-cell lymphoma
     Dosage: 3 ML, TIW, TIME INTERVAL: 0.33 WK
     Route: 065
     Dates: end: 20201221
  33. RITUXIMAB [Suspect]
     Active Substance: RITUXIMAB
     Indication: Diffuse large B-cell lymphoma
     Dosage: 3 ML, TIW, TIME INTERVAL: 0.33 WK
     Route: 065
     Dates: start: 20201221, end: 20201221
  34. RITUXIMAB [Suspect]
     Active Substance: RITUXIMAB
     Indication: Diffuse large B-cell lymphoma
     Dosage: 3 ML, TIW, TIME INTERVAL: 0.33 WK
     Route: 065
     Dates: start: 20201221, end: 20201221
  35. CODEINE [Concomitant]
     Active Substance: CODEINE
     Indication: Pain
     Dosage: TIME INTERVAL: AS NECESSARY: DURATION: 1 DAY
     Dates: start: 20201224, end: 20201224
  36. CODEINE [Concomitant]
     Active Substance: CODEINE
     Indication: Pain
     Dosage: UNK
     Route: 050
     Dates: start: 20201123
  37. CHLORPHENIRAMINE MALEATE [Concomitant]
     Active Substance: CHLORPHENIRAMINE MALEATE
     Indication: Prophylaxis
     Dosage: 10 MILLIGRAM, DOSE LAST STUDY DRUG ADMIN PRIOR AE 1260 MGSTART AD END DATE OF MOST RECENT DOSE OF...
     Route: 065
     Dates: start: 20201124, end: 20201124
  38. CHLORPHENIRAMINE MALEATE [Concomitant]
     Active Substance: CHLORPHENIRAMINE MALEATE
     Indication: Prophylaxis
     Dosage: 10 MG, DURATION: 1 DAY
     Route: 065
     Dates: start: 20210216, end: 20210216
  39. CHLORPHENIRAMINE MALEATE [Concomitant]
     Active Substance: CHLORPHENIRAMINE MALEATE
     Indication: Prophylaxis
     Dosage: UNK, DURATION: 1 DAY
     Route: 065
     Dates: start: 20210323, end: 20210323
  40. CHLORPHENIRAMINE MALEATE [Concomitant]
     Active Substance: CHLORPHENIRAMINE MALEATE
     Indication: Prophylaxis
     Dosage: 10 MG, DURATION: 1 DAY
     Route: 065
     Dates: start: 20210302, end: 20210302
  41. CHLORPHENIRAMINE MALEATE [Concomitant]
     Active Substance: CHLORPHENIRAMINE MALEATE
     Indication: Prophylaxis
     Dosage: 10 MG, DURATION: 1 DAY
     Route: 065
     Dates: start: 20210309, end: 20210309
  42. CHLORPHENIRAMINE MALEATE [Concomitant]
     Active Substance: CHLORPHENIRAMINE MALEATE
     Indication: Prophylaxis
     Dosage: 10 MG, DURATION: 1 DAY
     Route: 065
     Dates: start: 20210126, end: 20210126
  43. CHLORPHENIRAMINE MALEATE [Concomitant]
     Active Substance: CHLORPHENIRAMINE MALEATE
     Indication: Prophylaxis
     Dosage: UNK
     Route: 065
     Dates: start: 20201217
  44. CHLORPHENIRAMINE MALEATE [Concomitant]
     Active Substance: CHLORPHENIRAMINE MALEATE
     Indication: Prophylaxis
     Dosage: 10 MG, DURATION: 1 DAY
     Route: 065
     Dates: start: 20201215, end: 20201215
  45. CHLORPHENIRAMINE MALEATE [Concomitant]
     Active Substance: CHLORPHENIRAMINE MALEATE
     Indication: Prophylaxis
     Dosage: 10 MG, DURATION: 1 DAY
     Route: 065
     Dates: start: 20210119, end: 20210119
  46. CHLORPHENIRAMINE MALEATE [Concomitant]
     Active Substance: CHLORPHENIRAMINE MALEATE
     Indication: Prophylaxis
     Dosage: 10 MG, DURATION: 1 DAY
     Route: 065
     Dates: start: 20210209, end: 20210209
  47. SARS-COV-2 [Concomitant]
     Active Substance: SARS-COV-2
     Dosage: UNK
     Route: 065
  48. DOXORUBICIN [Suspect]
     Active Substance: DOXORUBICIN
     Indication: Diffuse large B-cell lymphoma
     Dosage: UNK
     Route: 065
     Dates: start: 20201124
  49. DOXORUBICIN [Suspect]
     Active Substance: DOXORUBICIN
     Indication: Diffuse large B-cell lymphoma
     Dosage: 80 MG/M2, EVERY 3 WEEKS, ON DAY 1 OF EACH 21 DAY CYCLE, DATE OF MOST RECENT DOSE PRIOR TO FIRST EPIS
     Route: 042
     Dates: start: 20201124
  50. DOXORUBICIN [Suspect]
     Active Substance: DOXORUBICIN
     Indication: Diffuse large B-cell lymphoma
     Dosage: UNK
     Route: 042
  51. DOXORUBICIN [Suspect]
     Active Substance: DOXORUBICIN
     Indication: Diffuse large B-cell lymphoma
     Dosage: UNK
     Route: 042
  52. DOXORUBICIN [Suspect]
     Active Substance: DOXORUBICIN
     Indication: Diffuse large B-cell lymphoma
     Dosage: UNK
     Route: 042
  53. FILGRASTIM [Concomitant]
     Active Substance: FILGRASTIM
     Indication: Prophylaxis
     Dosage: UNK, DURATION: 8 DAYS
     Dates: start: 20201129, end: 20201206
  54. FILGRASTIM [Concomitant]
     Active Substance: FILGRASTIM
     Indication: Prophylaxis
     Dosage: UNK
     Dates: start: 20201220
  55. OMEPRAZOLE [Concomitant]
     Active Substance: DONEPEZIL HYDROCHLORIDE\OMEPRAZOLE\OMEPRAZOLE MAGNESIUM
     Indication: Gastrointestinal disorder prophylaxis
     Dosage: UNK
  56. OMEPRAZOLE [Concomitant]
     Active Substance: DONEPEZIL HYDROCHLORIDE\OMEPRAZOLE\OMEPRAZOLE MAGNESIUM
     Indication: Gastrointestinal disorder prophylaxis
     Dosage: UNK
     Dates: start: 20201118
  57. DEXAMETHASONE [Concomitant]
     Active Substance: DEXAMETHASONE
     Indication: Product used for unknown indication
     Dosage: 20 MG, DURATION: 1 DAY
     Dates: start: 20210323, end: 20210323
  58. DEXAMETHASONE [Concomitant]
     Active Substance: DEXAMETHASONE
     Indication: Product used for unknown indication
     Dosage: 20 MG, DURATION: 1 DAY
     Dates: start: 20210209, end: 20210209
  59. DEXAMETHASONE [Concomitant]
     Active Substance: DEXAMETHASONE
     Indication: Product used for unknown indication
     Dosage: 20 MG, DURATION: 1 DAY
     Dates: start: 20210302, end: 20210302
  60. DEXAMETHASONE [Concomitant]
     Active Substance: DEXAMETHASONE
     Indication: Product used for unknown indication
     Dosage: 20 MG, DURATION: 1 DAY
     Dates: start: 20210119, end: 20210119
  61. DOXORUBICIN HYDROCHLORIDE [Suspect]
     Active Substance: DOXORUBICIN HYDROCHLORIDE
     Indication: Diffuse large B-cell lymphoma
     Route: 065
     Dates: start: 20201124
  62. BENDAMUSTINE [Suspect]
     Active Substance: BENDAMUSTINE
     Indication: Product used for unknown indication
     Dosage: UNK
     Route: 065
  63. PREDNISOLONE [Suspect]
     Active Substance: PREDNISOLONE
     Indication: Diffuse large B-cell lymphoma
     Dosage: UNK, DURATION: 5 DAYS
     Route: 065
     Dates: start: 20201118, end: 20201122
  64. VALGANCICLOVIR [Suspect]
     Active Substance: VALGANCICLOVIR
     Indication: Cytomegalovirus viraemia
     Dosage: UNK, DURATION: 18 DAYS
     Route: 065
     Dates: end: 20210513
  65. GLOFITAMAB [Suspect]
     Active Substance: GLOFITAMAB
     Indication: Diffuse large B-cell lymphoma
     Dosage: UNK
     Route: 065
  66. GLOFITAMAB [Suspect]
     Active Substance: GLOFITAMAB
     Indication: Diffuse large B-cell lymphoma
     Dosage: UNK
     Route: 065
  67. GLOFITAMAB [Suspect]
     Active Substance: GLOFITAMAB
     Indication: Diffuse large B-cell lymphoma
     Route: 065
  68. GLOFITAMAB [Suspect]
     Active Substance: GLOFITAMAB
     Indication: Diffuse large B-cell lymphoma
     Dosage: UNK
     Route: 065
  69. GLOFITAMAB [Suspect]
     Active Substance: GLOFITAMAB
     Indication: Diffuse large B-cell lymphoma
     Dosage: 2.5 MG, EVERY 3 WEEKS, THE MOST RECENT DOSE OF RO7082859 (10 MG) WAS ADMINISTERED ON 30/DEC/2020 AT
     Route: 065
  70. GLOFITAMAB [Suspect]
     Active Substance: GLOFITAMAB
     Indication: Diffuse large B-cell lymphoma
     Route: 050
  71. CYCLOPHOSPHAMIDE [Suspect]
     Active Substance: CYCLOPHOSPHAMIDE
     Indication: Diffuse large B-cell lymphoma
     Dosage: UNK
     Route: 042
  72. CYCLOPHOSPHAMIDE [Suspect]
     Active Substance: CYCLOPHOSPHAMIDE
     Indication: Diffuse large B-cell lymphoma
     Dosage: 1260 MG/M2, EVERY 3 WEEK, TOTAL VOLUME PRIOR AE 313 ML, DATE OF MOSTE RECENT DOSE PRIOR TO FIRST EPI
     Route: 042
     Dates: start: 20201124
  73. CYCLOPHOSPHAMIDE [Suspect]
     Active Substance: CYCLOPHOSPHAMIDE
     Indication: Diffuse large B-cell lymphoma
     Dosage: 1260 MG/M2, EVERY 3 WEEK, TOTAL VOLUME PRIOR AE 313 ML, DATE OF MOSTE RECENT DOSE PRIOR TO FIRST EPI
     Route: 042
     Dates: start: 20201124
  74. CYCLOPHOSPHAMIDE [Suspect]
     Active Substance: CYCLOPHOSPHAMIDE
     Indication: Diffuse large B-cell lymphoma
     Dosage: UNK
     Route: 042
  75. CYCLOPHOSPHAMIDE [Suspect]
     Active Substance: CYCLOPHOSPHAMIDE
     Indication: Diffuse large B-cell lymphoma
     Dosage: UNK
     Route: 065
  76. ALLOPURINOL [Concomitant]
     Active Substance: ALLOPURINOL
     Indication: Prophylaxis
     Dosage: UNK
     Dates: start: 20201118
  77. SENOKOT [Concomitant]
     Active Substance: SENNOSIDES
     Indication: Constipation
     Dosage: UNK, SENNA PODS POWDERED
  78. ACETAMINOPHEN [Concomitant]
     Active Substance: ACETAMINOPHEN
     Indication: Prophylaxis
     Dosage: 1000 MG
     Dates: start: 20210302, end: 20210302
  79. ACETAMINOPHEN [Concomitant]
     Active Substance: ACETAMINOPHEN
     Indication: Prophylaxis
     Dosage: 1000 MG
     Dates: start: 20210209, end: 20210209
  80. ACETAMINOPHEN [Concomitant]
     Active Substance: ACETAMINOPHEN
     Indication: Prophylaxis
     Dosage: 1000 MG
     Dates: start: 20210216, end: 20210216
  81. ACETAMINOPHEN [Concomitant]
     Active Substance: ACETAMINOPHEN
     Indication: Prophylaxis
     Dosage: 100 MG
     Dates: start: 20210126, end: 20210126
  82. ACETAMINOPHEN [Concomitant]
     Active Substance: ACETAMINOPHEN
     Indication: Prophylaxis
     Dosage: 1000 MG, DURATION: 1 DAY
     Dates: start: 20201124, end: 20201124
  83. ACETAMINOPHEN [Concomitant]
     Active Substance: ACETAMINOPHEN
     Indication: Prophylaxis
     Dosage: 1000 MG
     Dates: start: 20210323, end: 20210323
  84. ACETAMINOPHEN [Concomitant]
     Active Substance: ACETAMINOPHEN
     Indication: Prophylaxis
     Dosage: UNK
     Dates: start: 20201123
  85. ACETAMINOPHEN [Concomitant]
     Active Substance: ACETAMINOPHEN
     Indication: Prophylaxis
     Dosage: 1000 MG
     Dates: start: 20210119, end: 20210119
  86. ACETAMINOPHEN [Concomitant]
     Active Substance: ACETAMINOPHEN
     Indication: Prophylaxis
     Dosage: 1000 MG
     Dates: start: 20201215, end: 20201215
  87. ACETAMINOPHEN [Concomitant]
     Active Substance: ACETAMINOPHEN
     Indication: Prophylaxis
     Dosage: DURATION: 1 DAY
     Dates: start: 20210309, end: 20210309
  88. PREDNISOLONE [Concomitant]
     Active Substance: PREDNISOLONE
     Indication: Product used for unknown indication
     Route: 050
     Dates: start: 20201124
  89. PREDNISOLONE [Concomitant]
     Active Substance: PREDNISOLONE
     Indication: Product used for unknown indication
     Dosage: UNK
     Route: 050
     Dates: start: 20201118, end: 20201122

REACTIONS (3)
  - Neutropenia [Recovered/Resolved]
  - Product use in unapproved indication [Unknown]
  - Off label use [Unknown]

NARRATIVE: CASE EVENT DATE: 20201124
